FAERS Safety Report 5454078-7 (Version None)
Quarter: 2007Q3

REPORT INFORMATION
  Report Type: 
  Country: None (occurrence: None)
  Receive Date: 20070917
  Receipt Date: 20070709
  Transmission Date: 20080115
  Serious: Yes (Other)
  Sender: FDA-Public Use
  Company Number: US-ASTRAZENECA-2006UW09035

PATIENT
  Age: 14522 Day
  Sex: Male

DRUGS (4)
  1. SEROQUEL [Suspect]
     Indication: BIPOLAR DISORDER
     Dosage: 25 - 50 MG
     Route: 048
     Dates: start: 20030723, end: 20040319
  2. SEROQUEL [Suspect]
     Indication: DEPRESSION
     Dosage: 25 - 50 MG
     Route: 048
     Dates: start: 20030723, end: 20040319
  3. RISPERDAL [Suspect]
     Dates: start: 20040324, end: 20040330
  4. ZYPREXA [Suspect]
     Dosage: 2.5 - 10 MG
     Dates: start: 20030425, end: 20040722

REACTIONS (1)
  - PANCREATITIS [None]
